FAERS Safety Report 4810315-0 (Version None)
Quarter: 2005Q4

REPORT INFORMATION
  Report Type: 
  Country: None (occurrence: None)
  Receive Date: 20051024
  Receipt Date: 20051019
  Transmission Date: 20060501
  Serious: Yes (Death)
  Sender: FDA-Public Use
  Company Number: 05GER0215

PATIENT
  Sex: 0

DRUGS (1)
  1. AGGRASTAT [Suspect]
     Indication: CEREBROVASCULAR ACCIDENT
     Dosage: NR
     Dates: start: 20050801, end: 20050801

REACTIONS (1)
  - DEATH [None]
